FAERS Safety Report 6076531-8 (Version None)
Quarter: 2009Q1

REPORT INFORMATION
  Report Type: 
  Country: None (occurrence: None)
  Receive Date: 20090213
  Receipt Date: 20090202
  Transmission Date: 20090719
  Serious: Yes (Hospitalization, Other)
  Sender: FDA-Public Use
  Company Number: TV-BAYER-200912794GPV

PATIENT
  Age: 51 Year
  Sex: Male
  Weight: 62 kg

DRUGS (9)
  1. GLUCOBAY [Suspect]
     Indication: TYPE 2 DIABETES MELLITUS
     Dosage: UNIT DOSE: 50 MG
     Route: 048
     Dates: start: 20081230, end: 20090102
  2. METFORMIN HCL [Suspect]
     Indication: TYPE 2 DIABETES MELLITUS
     Dosage: UNIT DOSE: 500 MG
     Route: 048
     Dates: start: 20081106, end: 20090102
  3. OLMESARTAN MEDOXOMIL [Concomitant]
     Indication: HYPERTENSION
     Dosage: UNIT DOSE: 20 MG
     Route: 048
     Dates: start: 20080828
  4. BOKEY [Concomitant]
     Indication: HYPERTENSION
     Dosage: UNIT DOSE: 100 MG
     Route: 048
     Dates: start: 20080828
  5. FENOLIP [Concomitant]
     Indication: HYPERLIPIDAEMIA
     Dosage: UNIT DOSE: 200 MG
     Route: 048
     Dates: start: 20081109
  6. ADALAT [Concomitant]
     Indication: HYPERTENSION
     Dosage: UNIT DOSE: 30 MG
     Route: 048
     Dates: start: 20081204
  7. MELOXIN [Concomitant]
     Indication: OSTEONECROSIS
     Dosage: UNIT DOSE: 7.5 MG
     Route: 048
     Dates: start: 20081204
  8. NORFLEX [Concomitant]
     Indication: OSTEONECROSIS
     Dosage: UNIT DOSE: 100 MG
     Route: 048
     Dates: start: 20081107
  9. FOLIC ACID [Concomitant]
     Indication: DRUG USE FOR UNKNOWN INDICATION

REACTIONS (10)
  - ABDOMINAL DISTENSION [None]
  - ASTHENIA [None]
  - CHILLS [None]
  - CHROMATURIA [None]
  - HEPATITIS ACUTE [None]
  - HYPERBILIRUBINAEMIA [None]
  - JAUNDICE [None]
  - NAUSEA [None]
  - PYREXIA [None]
  - VOMITING [None]
